FAERS Safety Report 5014801-2 (Version None)
Quarter: 2006Q2

REPORT INFORMATION
  Report Type: 
  Country: None (occurrence: None)
  Receive Date: 20060424
  Receipt Date: 20050419
  Transmission Date: 20061013
  Serious: Yes (Other)
  Sender: FDA-Public Use
  Company Number: WAES 0504USA03606

PATIENT
  Sex: 0

DRUGS (1)
  1. SINGULAIR [Suspect]
     Dosage: 10 MG/DAILY/PO
     Route: 048

REACTIONS (1)
  - PANCREATITIS [None]
